FAERS Safety Report 5767633-1 (Version None)
Quarter: 2008Q2

REPORT INFORMATION
  Report Type: 
  Country: None (occurrence: None)
  Receive Date: 20080612
  Receipt Date: 20080602
  Transmission Date: 20081010
  Serious: Yes (Other)
  Sender: FDA-Public Use
  Company Number: BR-PFIZER INC-2008047479

PATIENT
  Sex: Male

DRUGS (1)
  1. CARDURAN XL [Suspect]
     Indication: BENIGN PROSTATIC HYPERPLASIA
     Route: 048
     Dates: start: 20080515, end: 20080516

REACTIONS (3)
  - BLINDNESS [None]
  - DIZZINESS [None]
  - TINNITUS [None]
